FAERS Safety Report 19271831 (Version 1)
Quarter: 2021Q2

REPORT INFORMATION
  Report Type: Spontaneous
  Country: US (occurrence: US)
  Receive Date: 20210519
  Receipt Date: 20210519
  Transmission Date: 20210717
  Serious: No
  Sender: FDA-Public Use
  Company Number: US-ORGANON-O2103USA002591

PATIENT
  Age: 25 Year
  Sex: Female
  Weight: 63.49 kg

DRUGS (2)
  1. NEXPLANON [Suspect]
     Active Substance: ETONOGESTREL
     Dosage: 1 DOSAGE FORM, RIGHT ARM
     Route: 059
     Dates: start: 2014
  2. NEXPLANON [Suspect]
     Active Substance: ETONOGESTREL
     Dosage: 1 DOSAGE FORM (LEFT ARM)
     Route: 059
     Dates: start: 2018, end: 202011

REACTIONS (6)
  - Amenorrhoea [Not Recovered/Not Resolved]
  - Complication associated with device [Not Recovered/Not Resolved]
  - Device placement issue [Not Recovered/Not Resolved]
  - Incorrect product administration duration [Unknown]
  - Implant site scar [Unknown]
  - Overdose [Unknown]

NARRATIVE: CASE EVENT DATE: 2017
